FAERS Safety Report 8558677-5 (Version None)
Quarter: 2012Q3

REPORT INFORMATION
  Report Type: 
  Country: None (occurrence: None)
  Receive Date: 20120801
  Receipt Date: 20120726
  Transmission Date: 20120928
  Serious: Yes (Hospitalization, Disabling, Other)
  Sender: FDA-Public Use
  Company Number: US-009507513-2008-188696-NL

PATIENT

DRUGS (5)
  1. ALLEGRA [Concomitant]
     Dosage: 180
     Dates: start: 20010605
  2. NUVARING [Suspect]
     Indication: CONTRACEPTION
     Dosage: CONTINUING: NO
     Dates: start: 20031101, end: 20041020
  3. NUVARING [Suspect]
     Indication: MENORRHAGIA
  4. IBUPROFEN [Concomitant]
     Indication: HEADACHE
     Dosage: DOSE TEXT: 1 TAB OD PRN, FREQUENCY: PRN
  5. CELEXA [Concomitant]
     Dosage: 20 MG, QD
     Dates: start: 20000619

REACTIONS (11)
  - HYPOPHOSPHATAEMIA [None]
  - SINUS DISORDER [None]
  - NASAL OBSTRUCTION [None]
  - PULMONARY INFARCTION [None]
  - RHINITIS [None]
  - UPPER EXTREMITY MASS [None]
  - PULMONARY EMBOLISM [None]
  - DYSPNOEA [None]
  - OFF LABEL USE [None]
  - FIBROCYSTIC BREAST DISEASE [None]
  - CARPAL TUNNEL SYNDROME [None]
